FAERS Safety Report 8404838 (Version 2)
Quarter: 2015Q2

REPORT INFORMATION
  Report Type: Spontaneous
  Country: US (occurrence: US)
  Receive Date: 20120214
  Receipt Date: 20150427
  Transmission Date: 20150821
  Serious: Yes (Hospitalization, Other)
  Sender: FDA-Public Use
  Company Number: US-ROCHE-794205

PATIENT
  Sex: Female
  Weight: 59.02 kg

DRUGS (1)
  1. ACCUTANE [Suspect]
     Active Substance: ISOTRETINOIN
     Indication: ACNE CYSTIC
     Route: 065
     Dates: start: 1989, end: 1994

REACTIONS (8)
  - Abscess limb [Unknown]
  - Cellulitis [Unknown]
  - Colitis ulcerative [Unknown]
  - Blood cholesterol increased [Unknown]
  - Inflammatory bowel disease [Unknown]
  - Depression [Unknown]
  - Irritable bowel syndrome [Unknown]
  - Blood triglycerides increased [Unknown]
